FAERS Safety Report 24428572 (Version 5)
Quarter: 2025Q3

REPORT INFORMATION
  Report Type: Spontaneous
  Country: US (occurrence: US)
  Receive Date: 20241011
  Receipt Date: 20250811
  Transmission Date: 20251020
  Serious: Yes (Other)
  Sender: MERCK SHARP & DOHME LLC
  Company Number: None

PATIENT
  Sex: Male
  Weight: 31.7 kg

DRUGS (22)
  1. SOTATERCEPT [Suspect]
     Active Substance: SOTATERCEPT
     Indication: Product used for unknown indication
     Dates: start: 20240925
  2. SOTATERCEPT [Suspect]
     Active Substance: SOTATERCEPT
  3. SOTATERCEPT [Suspect]
     Active Substance: SOTATERCEPT
  4. SOTATERCEPT [Suspect]
     Active Substance: SOTATERCEPT
  5. REMODULIN [Suspect]
     Active Substance: TREPROSTINIL
     Indication: Pulmonary arterial hypertension
     Route: 041
     Dates: start: 20181119
  6. CLONAZEPAM [Concomitant]
     Active Substance: CLONAZEPAM
  7. ZYRTEC [Concomitant]
     Active Substance: CETIRIZINE HYDROCHLORIDE
  8. IBUPROFEN [Concomitant]
     Active Substance: IBUPROFEN
  9. VITAMIN D2 [Concomitant]
     Active Substance: ERGOCALCIFEROL
  10. LETAIRIS [Concomitant]
     Active Substance: AMBRISENTAN
  11. WARFARIN SODIUM [Concomitant]
     Active Substance: WARFARIN SODIUM
  12. ACETAMINOPHEN [Concomitant]
     Active Substance: ACETAMINOPHEN
  13. TADALAFIL [Concomitant]
     Active Substance: TADALAFIL
  14. LEVALBUTEROL TARTRATE [Concomitant]
     Active Substance: LEVALBUTEROL TARTRATE
  15. CLOBAZAM [Concomitant]
     Active Substance: CLOBAZAM
  16. SYMBICORT [Concomitant]
     Active Substance: BUDESONIDE\FORMOTEROL FUMARATE DIHYDRATE
  17. PREDNISONE [Concomitant]
     Active Substance: PREDNISONE
  18. DIAZEPAM [Concomitant]
     Active Substance: DIAZEPAM
  19. BENADRYL [Concomitant]
     Active Substance: DIPHENHYDRAMINE HYDROCHLORIDE
  20. OXYGEN [Concomitant]
     Active Substance: OXYGEN
  21. METHYLPREDNISOLONE SODIUM SUCCINATE [Concomitant]
     Active Substance: METHYLPREDNISOLONE SODIUM SUCCINATE
  22. KEPPRA [Concomitant]
     Active Substance: LEVETIRACETAM

REACTIONS (7)
  - Seizure [Unknown]
  - Illness [Unknown]
  - Flushing [Unknown]
  - Epistaxis [Unknown]
  - Diarrhoea [Unknown]
  - Epistaxis [Not Recovered/Not Resolved]
  - Product administered to patient of inappropriate age [Unknown]

NARRATIVE: CASE EVENT DATE: 20240101
